FAERS Safety Report 16937686 (Version 1)
Quarter: 2019Q4

REPORT INFORMATION
  Report Type: Spontaneous
  Country: US (occurrence: US)
  Receive Date: 20191018
  Receipt Date: 20191018
  Transmission Date: 20200122
  Serious: Yes (Death)
  Sender: FDA-Public Use
  Company Number: US-FRESENIUS KABI-FK201911322

PATIENT
  Age: 58 Year
  Sex: Female

DRUGS (2)
  1. LACTULOSE (MANUFACTURER UNKNOWN) [Suspect]
     Active Substance: LACTULOSE
     Indication: HYPERAMMONAEMIA
     Route: 065
  2. CYCLOPHOSPHAMIDE. [Concomitant]
     Active Substance: CYCLOPHOSPHAMIDE
     Indication: B-CELL LYMPHOMA

REACTIONS (1)
  - Drug ineffective [Fatal]
